FAERS Safety Report 12226126 (Version 2)
Quarter: 2016Q2

REPORT INFORMATION
  Report Type: Spontaneous
  Country: US (occurrence: US)
  Receive Date: 20160331
  Receipt Date: 20160404
  Transmission Date: 20160815
  Serious: Yes (Hospitalization, Other)
  Sender: FDA-Public Use
  Company Number: US-MDT-ADR-2016-00531

PATIENT
  Age: 23 Year
  Sex: Male

DRUGS (3)
  1. ALCOHOL BLOCKS [Suspect]
     Active Substance: ALCOHOL
  2. GABLOFEN [Suspect]
     Active Substance: BACLOFEN
     Dosage: 362.3 MCG/DAY
     Route: 037
  3. BOTOX [Suspect]
     Active Substance: ONABOTULINUMTOXINA

REACTIONS (1)
  - No adverse event [None]
